FAERS Safety Report 7791981-7 (Version None)
Quarter: 2011Q4

REPORT INFORMATION
  Report Type: 
  Country: None (occurrence: None)
  Receive Date: 20111003
  Receipt Date: 20110920
  Transmission Date: 20120403
  Serious: Yes (Hospitalization)
  Sender: FDA-Public Use
  Company Number: US-BAYER-2011-055292

PATIENT
  Age: 29 Year
  Sex: Female
  Weight: 90.703 kg

DRUGS (5)
  1. PROMETHAZINE [Concomitant]
     Dosage: UNK
     Dates: start: 20060102
  2. KETEK [Concomitant]
     Dosage: 400 MG, UNK
     Dates: start: 20051226
  3. YASMIN [Suspect]
     Indication: PRODUCT USED FOR UNKNOWN INDICATION
     Dosage: UNK
     Dates: start: 20040101, end: 20060101
  4. BUTALBITAL ACETAMINOPHEN AND CAFFEINE [Concomitant]
     Dosage: UNK
     Dates: start: 20051125, end: 20060110
  5. CLARITHROMYCIN [Concomitant]
     Dosage: 500 MG, UNK
     Dates: start: 20060110

REACTIONS (3)
  - MYOCARDIAL INFARCTION [None]
  - PAIN [None]
  - INJURY [None]
